FAERS Safety Report 5722283-8 (Version None)
Quarter: 2008Q2

REPORT INFORMATION
  Report Type: 
  Country: None (occurrence: None)
  Receive Date: 20080429
  Receipt Date: 20071219
  Transmission Date: 20081010
  Serious: No
  Sender: FDA-Public Use
  Company Number: US-ASTRAZENECA-2007UW28729

PATIENT
  Age: 64 Year
  Sex: Male

DRUGS (7)
  1. NEXIUM [Suspect]
     Indication: GASTROOESOPHAGEAL REFLUX DISEASE
     Route: 048
     Dates: start: 20071211
  2. FOSAMAX [Concomitant]
  3. THEO-DUR [Concomitant]
  4. SINGULAIR [Concomitant]
  5. QVAR 40 [Concomitant]
  6. CALAN [Concomitant]
  7. ZOCOR [Concomitant]

REACTIONS (1)
  - HEART RATE INCREASED [None]
